FAERS Safety Report 21931931 (Version 2)
Quarter: 2023Q1

REPORT INFORMATION
  Report Type: Report from Study
  Country: JP (occurrence: JP)
  Receive Date: 20230131
  Receipt Date: 20230228
  Transmission Date: 20230417
  Serious: Yes (Death, Hospitalization)
  Sender: FDA-Public Use
  Company Number: JP-DSJP-DSJ-2021-129991

PATIENT
  Age: 55 Year
  Sex: Male
  Weight: 57.4 kg

DRUGS (4)
  1. ENHERTU [Suspect]
     Active Substance: FAM-TRASTUZUMAB DERUXTECAN-NXKI
     Indication: HER2 positive gastric cancer
     Dosage: 6.4 MG/KG, ONCE EVERY 3 WK
     Route: 041
     Dates: start: 20201217, end: 20201217
  2. ENHERTU [Suspect]
     Active Substance: FAM-TRASTUZUMAB DERUXTECAN-NXKI
     Dosage: 5.4 MG/KG, ONCE EVERY 3 WK
     Route: 041
     Dates: start: 20210108, end: 20210108
  3. UNSPECIFIED INGREDIENT [Concomitant]
     Active Substance: UNSPECIFIED INGREDIENT
     Dosage: UNK
     Route: 065
  4. 5-HT3 RECEPTOR ANTAGONIST [Concomitant]
     Dosage: UNK
     Route: 065

REACTIONS (6)
  - Embolism arterial [Recovering/Resolving]
  - Disease progression [Fatal]
  - Malaise [Unknown]
  - Decreased appetite [Unknown]
  - Dehydration [Unknown]
  - Malaise [Unknown]

NARRATIVE: CASE EVENT DATE: 20210101
